FAERS Safety Report 5124818-5 (Version None)
Quarter: 2006Q4

REPORT INFORMATION
  Report Type: 
  Country: None (occurrence: None)
  Receive Date: 20061011
  Receipt Date: 20060820
  Transmission Date: 20070319
  Serious: Yes (Hospitalization)
  Sender: FDA-Public Use
  Company Number: US-ROCHE-460276

PATIENT
  Age: 34 Year
  Sex: Female

DRUGS (5)
  1. PEGASYS [Suspect]
     Dosage: STRENGTH REPORTED AS 180 MCG/0.5 ML.
     Route: 058
     Dates: start: 20060622
  2. COPEGUS [Suspect]
     Dosage: ^MISSED TWO DAYS OF HER PILLS^.
     Route: 048
     Dates: start: 20060622, end: 20060915
  3. COPEGUS [Suspect]
     Route: 048
     Dates: start: 20060915
  4. XANAX [Concomitant]
     Indication: ANXIETY
     Route: 048
     Dates: start: 20030615
  5. PROZAC [Concomitant]
     Indication: DEPRESSION
     Route: 048
     Dates: start: 20060615

REACTIONS (9)
  - ARTHRALGIA [None]
  - ASTHENIA [None]
  - BEDRIDDEN [None]
  - DEHYDRATION [None]
  - DRUG INEFFECTIVE [None]
  - FLUSHING [None]
  - NAUSEA [None]
  - STOMATITIS [None]
  - VOMITING [None]
